FAERS Safety Report 10626470 (Version 1)
Quarter: 2014Q4

REPORT INFORMATION
  Report Type: Spontaneous
  Country: US (occurrence: US)
  Receive Date: 20141204
  Receipt Date: 20141204
  Transmission Date: 20150529
  Serious: No
  Sender: FDA-Public Use
  Company Number: US-SHIRE-US201408050

PATIENT
  Sex: Female
  Weight: 58.5 kg

DRUGS (2)
  1. ADDERALL XR [Suspect]
     Active Substance: AMPHETAMINE ASPARTATE\AMPHETAMINE SULFATE\DEXTROAMPHETAMINE SACCHARATE\DEXTROAMPHETAMINE SULFATE
     Indication: ATTENTION DEFICIT/HYPERACTIVITY DISORDER
     Dosage: 30 MG, 1X/DAY:QD, IN THE MORNING
     Route: 048
     Dates: start: 2013, end: 201409
  2. ADDERALL XR [Suspect]
     Active Substance: AMPHETAMINE ASPARTATE\AMPHETAMINE SULFATE\DEXTROAMPHETAMINE SACCHARATE\DEXTROAMPHETAMINE SULFATE
     Dosage: 5 MG, 1X/DAY:QD, IN THE EVENING
     Route: 048
     Dates: start: 201401, end: 201409

REACTIONS (6)
  - Drug effect decreased [Recovered/Resolved]
  - Inappropriate schedule of drug administration [Recovered/Resolved]
  - Decreased appetite [Not Recovered/Not Resolved]
  - Abdominal discomfort [Not Recovered/Not Resolved]
  - Agitation [Recovered/Resolved]
  - Prescribed overdose [Recovered/Resolved]

NARRATIVE: CASE EVENT DATE: 2013
